FAERS Safety Report 9760698 (Version 1)
Quarter: 2013Q4

REPORT INFORMATION
  Report Type: Spontaneous
  Country: US (occurrence: US)
  Receive Date: 20131216
  Receipt Date: 20131216
  Transmission Date: 20140711
  Serious: No
  Sender: FDA-Public Use
  Company Number: US-BIOGENIDEC-2013BI100279

PATIENT
  Sex: Female

DRUGS (9)
  1. TECFIDERA [Suspect]
     Indication: MULTIPLE SCLEROSIS
     Route: 048
     Dates: start: 201309
  2. ALBUTEROL SULFATE [Concomitant]
  3. BACLOFEN [Concomitant]
  4. BLACK COHOSH [Concomitant]
  5. CALCIUM [Concomitant]
  6. CLARITIN [Concomitant]
  7. VITAMIN B COMPLEX [Concomitant]
  8. VITAMIN C [Concomitant]
  9. VITAMIN D [Concomitant]

REACTIONS (2)
  - Sleep disorder [Unknown]
  - Faecal incontinence [Unknown]
